FAERS Safety Report 6260011-0 (Version None)
Quarter: 2009Q3

REPORT INFORMATION
  Report Type: 
  Country: None (occurrence: None)
  Receive Date: 20090708
  Receipt Date: 20090629
  Transmission Date: 20100115
  Serious: Yes (Hospitalization)
  Sender: FDA-Public Use
  Company Number: FR-AVENTIS-200912381FR

PATIENT
  Age: 80 Year
  Sex: Female

DRUGS (16)
  1. BRONCHOKOD [Suspect]
     Route: 048
     Dates: start: 20090406, end: 20090412
  2. TORENTAL [Suspect]
     Indication: DRUG USE FOR UNKNOWN INDICATION
     Route: 048
     Dates: end: 20090418
  3. CLAMOXYL                           /00249601/ [Suspect]
     Route: 048
     Dates: start: 20090406, end: 20090412
  4. NUREFLEX [Suspect]
     Route: 048
     Dates: start: 20090406, end: 20090412
  5. NECYRANE [Suspect]
     Route: 055
     Dates: start: 20090406, end: 20090412
  6. NOCTRAN [Suspect]
     Indication: INSOMNIA
     Route: 048
     Dates: end: 20090418
  7. ZYLORIC [Suspect]
     Route: 048
     Dates: end: 20090418
  8. TANAKAN                            /01003103/ [Suspect]
     Indication: DRUG USE FOR UNKNOWN INDICATION
     Route: 048
     Dates: end: 20090418
  9. DYNAMISAN                          /00759501/ [Suspect]
     Indication: ASTHENIA
     Route: 048
     Dates: end: 20090418
  10. VEINAMITOL [Suspect]
     Indication: VENOUS INSUFFICIENCY
     Route: 048
     Dates: end: 20090418
  11. EFFERALGAN                         /00020001/ [Suspect]
     Route: 048
     Dates: start: 20090406, end: 20090412
  12. SECTRAL [Concomitant]
     Indication: DRUG USE FOR UNKNOWN INDICATION
     Route: 048
  13. LEVOTHYROX [Concomitant]
     Indication: DRUG USE FOR UNKNOWN INDICATION
     Route: 048
  14. LASILIX                            /00032601/ [Concomitant]
     Indication: DRUG USE FOR UNKNOWN INDICATION
  15. ALDACTONE [Concomitant]
     Indication: DRUG USE FOR UNKNOWN INDICATION
     Route: 048
  16. XANAX [Concomitant]
     Indication: DRUG USE FOR UNKNOWN INDICATION
     Route: 048

REACTIONS (1)
  - ACUTE GENERALISED EXANTHEMATOUS PUSTULOSIS [None]
